FAERS Safety Report 23693635 (Version 1)
Quarter: 2024Q1

REPORT INFORMATION
  Report Type: Spontaneous
  Country: US (occurrence: None)
  Receive Date: 20240331
  Receipt Date: 20240331
  Transmission Date: 20240410
  Serious: Yes (Disabling)
  Sender: FDA-Public Use
  Company Number: None

PATIENT
  Age: 71 Year
  Sex: Female
  Weight: 45 kg

DRUGS (9)
  1. AIMOVIG [Suspect]
     Active Substance: ERENUMAB-AOOE
     Indication: Migraine
     Dosage: 1 INJECTIN  ONCE EVERY 28 DAYS INTARMUSCULAR
     Route: 030
     Dates: start: 20240325
  2. BOTOX [Concomitant]
     Active Substance: ONABOTULINUMTOXINA
  3. Donatol [Concomitant]
  4. Naproxen Prilosec Estradiol Latanoprost [Concomitant]
  5. Osteoporosis [Concomitant]
  6. Multi-viatmin [Concomitant]
  7. CALCIUM+D [Concomitant]
  8. B-Complex [Concomitant]
  9. DIGESTIVE ENZYME [Concomitant]

REACTIONS (4)
  - Tinnitus [None]
  - Brain fog [None]
  - Quality of life decreased [None]
  - Product communication issue [None]

NARRATIVE: CASE EVENT DATE: 20240327
